FAERS Safety Report 9131379 (Version 2)
Quarter: 2013Q2

REPORT INFORMATION
  Report Type: Spontaneous
  Country: US (occurrence: US)
  Receive Date: 20130301
  Receipt Date: 20130422
  Transmission Date: 20140414
  Serious: No
  Sender: FDA-Public Use
  Company Number: US-PFIZER INC-2013070820

PATIENT
  Age: 91 Year
  Sex: Male

DRUGS (1)
  1. NITROSTAT [Suspect]
     Indication: CHEST PAIN
     Dosage: 0.4 MG, AS NEEDED
     Route: 060
     Dates: start: 201211

REACTIONS (1)
  - Drug ineffective [Unknown]
